FAERS Safety Report 5323915-9 (Version None)
Quarter: 2007Q2

REPORT INFORMATION
  Report Type: 
  Country: None (occurrence: None)
  Receive Date: 20070514
  Receipt Date: 20070510
  Transmission Date: 20071010
  Serious: Yes (Other)
  Sender: FDA-Public Use
  Company Number: DE-SANOFI-SYNTHELABO-A01200701768

PATIENT
  Sex: Female
  Weight: 58 kg

DRUGS (3)
  1. PANTOZOL [Concomitant]
     Indication: GASTRIC MUCOSAL LESION
     Dosage: UNK
     Route: 065
     Dates: start: 19940101
  2. PLAVIX [Suspect]
     Indication: STENT PLACEMENT
     Route: 048
     Dates: start: 19961001, end: 20070221
  3. PLAVIX [Suspect]
     Indication: CORONARY ARTERY DISEASE
     Route: 048
     Dates: start: 19961001, end: 20070221

REACTIONS (3)
  - CONDITION AGGRAVATED [None]
  - GASTRIC MUCOSAL LESION [None]
  - REFLUX OESOPHAGITIS [None]
